FAERS Safety Report 11001436 (Version 2)
Quarter: 2015Q2

REPORT INFORMATION
  Report Type: Spontaneous
  Country: CN (occurrence: CN)
  Receive Date: 20150408
  Receipt Date: 20150410
  Transmission Date: 20150821
  Serious: Yes (Death, Hospitalization)
  Sender: FDA-Public Use
  Company Number: CN-SA-2015SA039194

PATIENT
  Age: 46 Year
  Sex: Female

DRUGS (1)
  1. RIFAMPICIN [Suspect]
     Active Substance: RIFAMPIN
     Indication: PULMONARY TUBERCULOSIS
     Route: 048
     Dates: start: 20130717, end: 20130717

REACTIONS (18)
  - Blood pressure decreased [Fatal]
  - Heart sounds abnormal [Fatal]
  - Dizziness [Fatal]
  - Pyrexia [Fatal]
  - Heart rate increased [Fatal]
  - Chills [Recovered/Resolved]
  - Oxygen saturation decreased [Fatal]
  - Carotid pulse decreased [Fatal]
  - Heart rate decreased [Fatal]
  - Pupil fixed [Fatal]
  - Blood pressure immeasurable [Fatal]
  - Loss of consciousness [Fatal]
  - Palpitations [Fatal]
  - Pulse absent [Fatal]
  - Anaphylactic shock [Fatal]
  - Respiratory rate decreased [Fatal]
  - Areflexia [Fatal]
  - Multi-organ disorder [Fatal]

NARRATIVE: CASE EVENT DATE: 20130717
